FAERS Safety Report 7575433-5 (Version None)
Quarter: 2011Q2

REPORT INFORMATION
  Report Type: 
  Country: None (occurrence: None)
  Receive Date: 20110627
  Receipt Date: 20110622
  Transmission Date: 20111010
  Serious: Yes (Life-Threatening, Hospitalization)
  Sender: FDA-Public Use
  Company Number: GB-PFIZER INC-2011139332

PATIENT
  Age: 52 Year
  Sex: Female

DRUGS (4)
  1. DAUNORUBICIN HCL [Suspect]
     Dosage: UNK
     Dates: start: 20101124, end: 20101203
  2. CYTARABINE [Suspect]
     Dosage: UNK
     Dates: start: 20101124, end: 20101203
  3. ETOPOSIDE [Suspect]
     Dosage: UNK
     Dates: start: 20101124, end: 20101203
  4. GEMTUZUMAB OZOGAMICIN [Suspect]
     Dosage: UNK
     Dates: start: 20101124, end: 20101203

REACTIONS (1)
  - NECROTISING FASCIITIS [None]
